FAERS Safety Report 16476131 (Version 4)
Quarter: 2020Q1

REPORT INFORMATION
  Report Type: Report from Study
  Country: None (occurrence: US)
  Receive Date: 20190625
  Receipt Date: 20200118
  Transmission Date: 20200409
  Serious: Yes (Hospitalization, Other)
  Sender: FDA-Public Use
  Company Number: US-ABBVIE-19K-163-2746645-00

PATIENT
  Age: 37 Year
  Sex: Female
  Weight: 44.95 kg

DRUGS (8)
  1. HUMIRA [Suspect]
     Active Substance: ADALIMUMAB
     Route: 058
     Dates: start: 201905, end: 2019
  2. CARAFATE [Concomitant]
     Active Substance: SUCRALFATE
     Indication: ULCER
  3. HUMIRA [Suspect]
     Active Substance: ADALIMUMAB
     Route: 058
     Dates: start: 20190701
  4. HUMIRA [Suspect]
     Active Substance: ADALIMUMAB
     Indication: SHORT-BOWEL SYNDROME
     Dosage: LOADING DOSE
     Route: 058
     Dates: start: 20190517, end: 20190517
  5. TRILEPTAL [Concomitant]
     Active Substance: OXCARBAZEPINE
     Indication: SEIZURE
  6. ATIVAN [Concomitant]
     Active Substance: LORAZEPAM
     Indication: ANXIETY
  7. HUMIRA [Suspect]
     Active Substance: ADALIMUMAB
     Indication: CROHN^S DISEASE
     Dosage: LOADING DOSE
     Route: 058
     Dates: start: 20190329, end: 20190329
  8. PREVACID [Concomitant]
     Active Substance: LANSOPRAZOLE
     Indication: GASTROOESOPHAGEAL REFLUX DISEASE

REACTIONS (16)
  - Generalised tonic-clonic seizure [Recovered/Resolved]
  - Sepsis [Recovered/Resolved]
  - Haemorrhage [Recovered/Resolved]
  - Device related sepsis [Not Recovered/Not Resolved]
  - Sepsis [Recovered/Resolved]
  - Hypoaesthesia [Not Recovered/Not Resolved]
  - Urinary tract infection [Recovered/Resolved]
  - Drug specific antibody [Unknown]
  - Drug ineffective [Unknown]
  - Blood potassium decreased [Not Recovered/Not Resolved]
  - Urinary tract infection [Not Recovered/Not Resolved]
  - Gastrointestinal haemorrhage [Recovered/Resolved]
  - Behaviour disorder [Not Recovered/Not Resolved]
  - Headache [Not Recovered/Not Resolved]
  - Intestinal obstruction [Recovered/Resolved]
  - Paraesthesia [Not Recovered/Not Resolved]

NARRATIVE: CASE EVENT DATE: 2019
